FAERS Safety Report 5630086-8 (Version None)
Quarter: 2008Q1

REPORT INFORMATION
  Report Type: 
  Country: None (occurrence: None)
  Receive Date: 20080218
  Receipt Date: 20080213
  Transmission Date: 20080703
  Serious: Yes (Hospitalization)
  Sender: FDA-Public Use
  Company Number: PHNR2008AU00478

PATIENT
  Age: 39 Year
  Sex: Female

DRUGS (4)
  1. SYNTOCINON [Suspect]
     Indication: CAESAREAN SECTION
     Dosage: 5 IU
     Route: 042
     Dates: start: 20080105
  2. CEPHALEXIN [Concomitant]
     Dosage: 1 G STAT
     Dates: start: 20080105, end: 20080105
  3. PARACETAMOL [Concomitant]
     Dosage: 1 G 4 HOURLY
     Dates: start: 20080105, end: 20080109
  4. VOLTAREN [Concomitant]
     Dosage: 100 MG 12 HOURLY
     Dates: start: 20080105, end: 20080109

REACTIONS (2)
  - HAEMOGLOBIN DECREASED [None]
  - POSTPARTUM HAEMORRHAGE [None]
